FAERS Safety Report 20551134 (Version 1)
Quarter: 2022Q1

REPORT INFORMATION
  Report Type: Other
  Country: US (occurrence: None)
  Receive Date: 20220304
  Receipt Date: 20220304
  Transmission Date: 20220424
  Serious: Yes (Other)
  Sender: FDA-Public Use
  Company Number: US-ROCHE-3035277

PATIENT
  Age: 32 Year
  Sex: Female
  Weight: 118.04 kg

DRUGS (7)
  1. OCREVUS [Suspect]
     Active Substance: OCRELIZUMAB
     Indication: Relapsing multiple sclerosis
     Dosage: SUBSEQUENT 300 MG SAME AS ABOVE: STARTED MAYBE JUL-2019
     Route: 042
     Dates: start: 201907
  2. OCREVUS [Suspect]
     Active Substance: OCRELIZUMAB
     Dosage: 300 MG IN 250 ML START AT 30 ML/HR INCREASE BY 30ML 180 ML
     Route: 042
  3. BENADRYL [Concomitant]
     Active Substance: DIPHENHYDRAMINE HYDROCHLORIDE
  4. BACLOFEN [Concomitant]
     Active Substance: BACLOFEN
  5. MACROBID [Concomitant]
     Active Substance: NITROFURANTOIN\NITROFURANTOIN MONOHYDRATE
  6. CELEBREX [Concomitant]
     Active Substance: CELECOXIB
  7. MODERNA COVID-19 VACCINE [Concomitant]
     Active Substance: ELASOMERAN

REACTIONS (8)
  - COVID-19 [Not Recovered/Not Resolved]
  - Panic attack [Recovered/Resolved]
  - Urinary tract infection [Not Recovered/Not Resolved]
  - Progressive relapsing multiple sclerosis [Recovered/Resolved]
  - Drug ineffective [Unknown]
  - Heart rate increased [Not Recovered/Not Resolved]
  - Influenza like illness [Not Recovered/Not Resolved]
  - Atypical pneumonia [Recovering/Resolving]

NARRATIVE: CASE EVENT DATE: 20210801
